FAERS Safety Report 8165641-7 (Version None)
Quarter: 2012Q1

REPORT INFORMATION
  Report Type: 
  Country: None (occurrence: None)
  Receive Date: 20120227
  Receipt Date: 20120213
  Transmission Date: 20120608
  Serious: Yes (Hospitalization, Other)
  Sender: FDA-Public Use
  Company Number: US-JNJFOC-20120206774

PATIENT
  Sex: Female
  Weight: 68.04 kg

DRUGS (4)
  1. PREDNISONE TAB [Concomitant]
     Indication: ARTHRITIS
     Route: 048
  2. PRINZIDE [Concomitant]
     Indication: BLOOD PRESSURE
     Dosage: 20-12.5MG/TABLET/20-12.5MG
     Route: 048
  3. REMICADE [Suspect]
     Indication: RHEUMATOID ARTHRITIS
     Dosage: INITIATED ABOUT 10 OR 12 YEARS AGO
     Route: 042
  4. REMICADE [Suspect]
     Dosage: INCREASED FROM 6 TO 8 BOTTLES
     Route: 042

REACTIONS (7)
  - RHEUMATOID ARTHRITIS [None]
  - BACK PAIN [None]
  - DRUG INEFFECTIVE [None]
  - DEPRESSION [None]
  - CONTUSION [None]
  - BACTERIAL INFECTION [None]
  - ABDOMINAL DISCOMFORT [None]
